FAERS Safety Report 5684745-1 (Version None)
Quarter: 2008Q1

REPORT INFORMATION
  Report Type: 
  Country: None (occurrence: None)
  Receive Date: 20080328
  Receipt Date: 19891214
  Transmission Date: 20080703
  Serious: Yes (Death, Hospitalization, Other)
  Sender: FDA-Public Use
  Company Number: FR-ROCHE-12892

PATIENT
  Age: 67 Year
  Sex: Male
  Weight: 67.7 kg

DRUGS (9)
  1. TICLID [Suspect]
     Indication: TRANSIENT ISCHAEMIC ATTACK
     Route: 048
  2. GLIBENCLAMIDE [Concomitant]
     Route: 048
  3. GLICLAZIDE [Concomitant]
     Route: 048
  4. BEZAFIBRATE [Concomitant]
     Route: 048
  5. BETAXOLOL [Concomitant]
     Indication: HYPERTENSION
     Route: 048
  6. DISOPYRAMIDE [Concomitant]
  7. PIRACETAM [Concomitant]
  8. PENTOXIFYLLINE [Concomitant]
  9. NAFTIDROFURYL [Concomitant]

REACTIONS (7)
  - COMA [None]
  - CYTOLYTIC HEPATITIS [None]
  - DEATH [None]
  - HEPATIC NECROSIS [None]
  - HEPATITIS NON-A NON-B [None]
  - MALAISE [None]
  - PLATELET COUNT DECREASED [None]
